FAERS Safety Report 12063351 (Version 2)
Quarter: 2016Q2

REPORT INFORMATION
  Report Type: Spontaneous
  Country: US (occurrence: US)
  Receive Date: 20160210
  Receipt Date: 20160401
  Transmission Date: 20160815
  Serious: Yes (Other)
  Sender: FDA-Public Use
  Company Number: US-BAYER-2016-024591

PATIENT
  Age: 40 Year
  Sex: Female
  Weight: 61.68 kg

DRUGS (1)
  1. MIRENA [Suspect]
     Active Substance: LEVONORGESTREL
     Indication: CONTRACEPTION
     Dosage: 20 MCG/24HR, CONT
     Route: 015
     Dates: start: 20150430, end: 20160205

REACTIONS (3)
  - Genital haemorrhage [Recovered/Resolved]
  - Genital haemorrhage [None]
  - Embedded device [Recovered/Resolved]

NARRATIVE: CASE EVENT DATE: 20150603
